FAERS Safety Report 9181351 (Version 2)
Quarter: 2014Q2

REPORT INFORMATION
  Report Type: Spontaneous
  Country: US (occurrence: None)
  Receive Date: 20120621
  Receipt Date: 20140514
  Transmission Date: 20141212
  Serious: Yes (Hospitalization)
  Sender: FDA-Public Use
  Company Number: 031610

PATIENT
  Sex: Female
  Weight: 50.8 kg

DRUGS (10)
  1. CIMZIA [Suspect]
     Indication: CROHN^S DISEASE
     Route: 058
     Dates: start: 20090926, end: 20110408
  2. ASCAL (00800002) [Concomitant]
     Indication: CROHN^S DISEASE
     Dosage: 1X/4 WEEKS, LOT NO : 88736, EXPIRY DATE: SEP-2015 SUBCUTANEOUS
     Route: 058
     Dates: start: 20090926
  3. PREDNISONE [Concomitant]
  4. AMOXICILINA/ 00249601 [Concomitant]
  5. CIPROFLOXACIN [Concomitant]
  6. HEPARIN [Concomitant]
  7. HYDROMORPHONE [Concomitant]
  8. PROTONIX [Concomitant]
  9. TYLENOL EXTRA STRENGTH [Concomitant]
  10. IMURAN /00001501/ [Concomitant]

REACTIONS (2)
  - Intestinal stenosis [None]
  - Crohn^s disease [None]
